FAERS Safety Report 9462046 (Version 1)
Quarter: 2013Q3

REPORT INFORMATION
  Report Type: Spontaneous
  Country: US (occurrence: None)
  Receive Date: 20130815
  Receipt Date: 20130815
  Transmission Date: 20140515
  Serious: Yes (Hospitalization)
  Sender: FDA-Public Use
  Company Number: None

PATIENT
  Age: 90 Year
  Sex: Female
  Weight: 103 kg

DRUGS (5)
  1. LIVALO [Suspect]
     Indication: DIABETES MELLITUS
     Route: 048
  2. HUMALOG MIX [Suspect]
     Indication: DIABETES MELLITUS
     Dosage: 75/25 12 UNITS QAM SQ
     Route: 058
  3. MVI [Concomitant]
  4. ARIMIDEX [Concomitant]
  5. ASPIRIN [Concomitant]

REACTIONS (4)
  - Fall [None]
  - Blood glucose decreased [None]
  - Hip fracture [None]
  - Haemorrhagic anaemia [None]
